FAERS Safety Report 8157728-X (Version None)
Quarter: 2012Q1

REPORT INFORMATION
  Report Type: 
  Country: None (occurrence: None)
  Receive Date: 20120222
  Receipt Date: 20120214
  Transmission Date: 20120608
  Serious: Yes (Other)
  Sender: FDA-Public Use
  Company Number: US-US-EMD SERONO, INC.-7109058

PATIENT
  Sex: Female

DRUGS (3)
  1. REBIF [Suspect]
     Route: 058
     Dates: start: 20111219
  2. REBIF [Suspect]
     Indication: MULTIPLE SCLEROSIS
     Route: 058
  3. REBIF [Suspect]
     Route: 058
     Dates: start: 20120124

REACTIONS (6)
  - MOBILITY DECREASED [None]
  - MULTIPLE SCLEROSIS RELAPSE [None]
  - WEIGHT DECREASED [None]
  - CONVULSION [None]
  - EMOTIONAL DISTRESS [None]
  - OPTIC NEURITIS [None]
